FAERS Safety Report 18151093 (Version 7)
Quarter: 2020Q4

REPORT INFORMATION
  Report Type: Spontaneous
  Country: US (occurrence: US)
  Receive Date: 20200814
  Receipt Date: 20201208
  Transmission Date: 20210113
  Serious: Yes (Other)
  Sender: FDA-Public Use
  Company Number: US-PFIZER INC-2020312491

PATIENT
  Age: 85 Year
  Sex: Female

DRUGS (1)
  1. NORVASC [Suspect]
     Active Substance: AMLODIPINE BESYLATE
     Dosage: UNK (AT NIGHT)

REACTIONS (8)
  - Glaucoma [Unknown]
  - Visual impairment [Recovering/Resolving]
  - Bladder disorder [Unknown]
  - Micturition urgency [Unknown]
  - Insomnia [Unknown]
  - Arthritis [Unknown]
  - Confusional state [Unknown]
  - Memory impairment [Unknown]
